FAERS Safety Report 9164654 (Version 1)
Quarter: 2013Q1

REPORT INFORMATION
  Report Type: Spontaneous
  Country: US (occurrence: US)
  Receive Date: 20130315
  Receipt Date: 20130315
  Transmission Date: 20140127
  Serious: No
  Sender: FDA-Public Use
  Company Number: US-B.I. PHARMACEUTICALS,INC./RIDGEFIELD-2013-BI-06454BP

PATIENT
  Age: 67 Year
  Sex: Male
  Weight: 109 kg

DRUGS (2)
  1. TRADJENTA [Suspect]
     Indication: DIABETES MELLITUS MANAGEMENT
     Dosage: 5 MG
     Route: 048
     Dates: start: 20130306
  2. TRADJENTA [Suspect]
     Indication: TYPE 2 DIABETES MELLITUS

REACTIONS (2)
  - Abdominal discomfort [Not Recovered/Not Resolved]
  - Asthenia [Not Recovered/Not Resolved]
